FAERS Safety Report 5504280-0 (Version None)
Quarter: 2007Q4

REPORT INFORMATION
  Report Type: 
  Country: None (occurrence: None)
  Receive Date: 20071101
  Receipt Date: 20071018
  Transmission Date: 20080405
  Serious: Yes (Other)
  Sender: FDA-Public Use
  Company Number: GB-RANBAXY-2007RR-10854

PATIENT

DRUGS (2)
  1. FUROSEMIDE TABLETS BP 40MG [Suspect]
     Dosage: 40 MG, UNK
     Route: 048
     Dates: start: 20071002, end: 20071003
  2. TINZAPARIN [Concomitant]
     Dosage: 7000 IU, UNK
     Route: 058
     Dates: start: 20071002

REACTIONS (5)
  - PRURITUS [None]
  - RASH PAPULAR [None]
  - RASH PUSTULAR [None]
  - SKIN BURNING SENSATION [None]
  - VASCULITIC RASH [None]
